FAERS Safety Report 10428140 (Version 1)
Quarter: 2014Q3

REPORT INFORMATION
  Report Type: Spontaneous
  Country: US (occurrence: US)
  Receive Date: 20140903
  Receipt Date: 20140903
  Transmission Date: 20150326
  Serious: Yes (Other)
  Sender: FDA-Public Use
  Company Number: CHPA2014US011403

PATIENT
  Sex: Female

DRUGS (6)
  1. EXCEDRIN EXTRA STRENGTH [Suspect]
     Active Substance: ACETAMINOPHEN\ASPIRIN\CAFFEINE
     Dosage: 24 DF, QD
     Route: 048
     Dates: start: 1972, end: 1976
  2. EXCEDRIN EXTRA STRENGTH [Suspect]
     Active Substance: ACETAMINOPHEN\ASPIRIN\CAFFEINE
     Dosage: 32 DF, QD
     Route: 048
     Dates: start: 1976, end: 1979
  3. EXCEDRIN TENSION HEADACHE [Suspect]
     Active Substance: ACETAMINOPHEN\CAFFEINE
     Indication: HEADACHE
     Dosage: 2 DF, PRN
     Route: 048
  4. EXCEDRIN EXTRA STRENGTH [Suspect]
     Active Substance: ACETAMINOPHEN\ASPIRIN\CAFFEINE
     Indication: HEADACHE
     Dosage: 48, 62, OR 64 DF, QD
     Route: 048
     Dates: start: 1972, end: 1979
  5. EXCEDRIN TENSION HEADACHE [Suspect]
     Active Substance: ACETAMINOPHEN\CAFFEINE
     Indication: HEADACHE
     Dosage: 2 DF, PRN
     Route: 048
  6. ACETYLSALICYLIC ACID [Suspect]
     Active Substance: ASPIRIN
     Dosage: UNK,UNK
     Route: 048
     Dates: start: 198008

REACTIONS (5)
  - Convulsion [Not Recovered/Not Resolved]
  - Meningioma [Recovered/Resolved]
  - Incorrect dose administered [Unknown]
  - Disease recurrence [Recovered/Resolved]
  - Brain neoplasm [Recovered/Resolved]

NARRATIVE: CASE EVENT DATE: 1979
